FAERS Safety Report 25401259 (Version 1)
Quarter: 2025Q2

REPORT INFORMATION
  Report Type: Spontaneous
  Country: TH (occurrence: TH)
  Receive Date: 20250605
  Receipt Date: 20250605
  Transmission Date: 20250717
  Serious: Yes (Other)
  Sender: Visiox
  Company Number: TH-Santen Inc-2025-THA-005540

PATIENT
  Age: 7 Decade
  Sex: Female

DRUGS (1)
  1. OMIDENEPAG ISOPROPYL [Suspect]
     Active Substance: OMIDENEPAG ISOPROPYL
     Indication: Normal tension glaucoma
     Route: 047

REACTIONS (2)
  - Intraocular pressure increased [Recovered/Resolved]
  - Vision blurred [Recovered/Resolved]
